FAERS Safety Report 10709169 (Version 1)
Quarter: 2015Q1

REPORT INFORMATION
  Report Type: Spontaneous
  Country: FR (occurrence: FR)
  Receive Date: 20150114
  Receipt Date: 20150114
  Transmission Date: 20150721
  Serious: Yes (Other)
  Sender: FDA-Public Use
  Company Number: FR-009507513-1501FRA003138

PATIENT
  Sex: Female
  Weight: 60 kg

DRUGS (2)
  1. NUVARING [Suspect]
     Active Substance: ETHINYL ESTRADIOL\ETONOGESTREL
     Dosage: UNK
     Route: 067
     Dates: start: 2005, end: 2012
  2. NUVARING [Suspect]
     Active Substance: ETHINYL ESTRADIOL\ETONOGESTREL
     Indication: CONTRACEPTION
     Dosage: UNK
     Route: 067

REACTIONS (9)
  - Unintended pregnancy [Recovered/Resolved]
  - Mood altered [Not Recovered/Not Resolved]
  - Fatigue [Unknown]
  - Depression [Not Recovered/Not Resolved]
  - Abortion [Recovered/Resolved]
  - Weight fluctuation [Unknown]
  - Breast pain [Unknown]
  - Migraine [Unknown]
  - Medication error [Unknown]

NARRATIVE: CASE EVENT DATE: 2012
